FAERS Safety Report 25685247 (Version 1)
Quarter: 2025Q3

REPORT INFORMATION
  Report Type: Spontaneous
  Country: US (occurrence: None)
  Receive Date: 20250814
  Receipt Date: 20250814
  Transmission Date: 20251020
  Serious: No
  Sender: FDA-CTU
  Company Number: None

PATIENT
  Sex: Female

DRUGS (1)
  1. ZURZUVAE [Suspect]
     Active Substance: ZURANOLONE
     Indication: Perinatal depression
     Dosage: FREQUENCY : AT BEDTIME;?
     Route: 048
     Dates: end: 20250723

REACTIONS (7)
  - Fatigue [None]
  - Somnolence [None]
  - Tremor [None]
  - Confusional state [None]
  - Speech disorder [None]
  - Anxiety [None]
  - Balance disorder [None]
